FAERS Safety Report 20310458 (Version 1)
Quarter: 2022Q1

REPORT INFORMATION
  Report Type: Spontaneous
  Country: HR (occurrence: HR)
  Receive Date: 20220107
  Receipt Date: 20220107
  Transmission Date: 20220424
  Serious: Yes (Hospitalization, Other)
  Sender: FDA-Public Use
  Company Number: HR-EMA-DD-20211222-bhushan_a-185556

PATIENT
  Age: 72 Year
  Weight: 78 kg

DRUGS (11)
  1. AMLODIPINE\RAMIPRIL [Suspect]
     Active Substance: AMLODIPINE\RAMIPRIL
     Dosage: 1 DOSAGE FORMS DAILY; 1 DF, 1X/DAY FOR ACTIVE INGREDIENT AMLODIPINE BESILATE THE STRENGTH IS 5 MILLI
     Route: 065
  2. ATORVASTATIN CALCIUM [Suspect]
     Active Substance: ATORVASTATIN CALCIUM
     Dosage: 20 MILLIGRAM DAILY;
  3. BISOPROLOL [Suspect]
     Active Substance: BISOPROLOL
     Dosage: 5 MILLIGRAM DAILY; 5 MG, 1X/DAY (IN THE MORNING)
  4. BISOPROLOL [Suspect]
     Active Substance: BISOPROLOL
     Dosage: 2.5 MG, 1X/DAY (IN THE EVENING)
  5. ASPIRIN [Suspect]
     Active Substance: ASPIRIN
     Dosage: 100 MILLIGRAM DAILY; 100 MG, 1X/DAY
  6. TORSEMIDE [Suspect]
     Active Substance: TORSEMIDE
     Dosage: 10 MILLIGRAM DAILY; 10 MG, 1X/DAY
  7. INDAPAMIDE [Suspect]
     Active Substance: INDAPAMIDE
     Dosage: 1 DOSAGE FORMS DAILY; 1 DF, 1X/DAY
  8. ELIQUIS [Suspect]
     Active Substance: APIXABAN
     Indication: Cerebrovascular accident prophylaxis
     Dosage: 5 MILLIGRAM DAILY; 2.5 MILLIGRAM, BID
     Route: 065
  9. ELIQUIS [Suspect]
     Active Substance: APIXABAN
     Dosage: 10 MILLIGRAM DAILY; 5 MILLIGRAM, BID
     Route: 065
  10. RABEPRAZOLE [Suspect]
     Active Substance: RABEPRAZOLE
     Dosage: 10 MILLIGRAM DAILY; 10 MG, 1X/DAY
  11. METFORMIN [Concomitant]
     Active Substance: METFORMIN HYDROCHLORIDE
     Dosage: 1000 MILLIGRAM DAILY; 500 MG, 2X/DAY

REACTIONS (11)
  - Acute myocardial infarction [Unknown]
  - Melaena [Recovered/Resolved]
  - Atrial fibrillation [Unknown]
  - Gastric ulcer [Unknown]
  - Fatigue [Unknown]
  - Prescribed underdose [Unknown]
  - Dyspnoea [Unknown]
  - Abdominal pain upper [Unknown]
  - Palpitations [Unknown]
  - Chest pain [Unknown]
  - Helicobacter test positive [Recovered/Resolved]
